FAERS Safety Report 21327814 (Version 2)
Quarter: 2022Q3

REPORT INFORMATION
  Report Type: Spontaneous
  Country: US (occurrence: US)
  Receive Date: 20220913
  Receipt Date: 20220929
  Transmission Date: 20221027
  Serious: No
  Sender: FDA-Public Use
  Company Number: US-AMGEN-USASP2022155330

PATIENT
  Age: 76 Year
  Sex: Female

DRUGS (2)
  1. REPATHA [Suspect]
     Active Substance: EVOLOCUMAB
     Indication: Product used for unknown indication
     Dosage: 420 MILLIGRAM
     Route: 065
     Dates: start: 202010
  2. REPATHA [Suspect]
     Active Substance: EVOLOCUMAB
     Dosage: 3.5 MILLIGRAM, Q2WK
     Route: 065

REACTIONS (1)
  - Low density lipoprotein increased [Unknown]
